FAERS Safety Report 9160484 (Version 1)
Quarter: 2013Q1

REPORT INFORMATION
  Report Type: Spontaneous
  Country: DE (occurrence: DE)
  Receive Date: 20130313
  Receipt Date: 20130313
  Transmission Date: 20140127
  Serious: Yes (Hospitalization, Disabling, Other)
  Sender: FDA-Public Use
  Company Number: DE-BAYER-2013-030101

PATIENT
  Sex: Male

DRUGS (4)
  1. XARELTO [Suspect]
     Dosage: DAILY DOSE 20 MG
  2. ACETYLSALICYLIC ACID({=100 MG) [Suspect]
     Dosage: 100 MG, UNK
     Route: 048
  3. PRAVASIN [Concomitant]
     Dosage: 20 MG, UNK
     Route: 048
  4. L-THYROXIN [Concomitant]
     Dosage: 100 ?G, UNK
     Route: 048

REACTIONS (4)
  - Haemorrhage intracranial [Not Recovered/Not Resolved]
  - Personality change [None]
  - Cognitive disorder [None]
  - Drug interaction [None]
